FAERS Safety Report 4916809-1 (Version None)
Quarter: 2006Q1

REPORT INFORMATION
  Report Type: 
  Country: None (occurrence: None)
  Receive Date: 20060220
  Receipt Date: 20060209
  Transmission Date: 20060701
  Serious: Yes (Hospitalization)
  Sender: FDA-Public Use
  Company Number: FR-ROCHE-435940

PATIENT
  Age: 4 Year
  Sex: Female

DRUGS (6)
  1. ROCEPHIN [Suspect]
     Indication: DRUG USE FOR UNKNOWN INDICATION
     Route: 030
     Dates: start: 20050513, end: 20050513
  2. SOLUPRED [Concomitant]
     Dates: start: 20050513
  3. ULTRA LEVURE [Concomitant]
     Dates: start: 20050513
  4. EFFERALGAN [Concomitant]
     Dates: start: 20050513
  5. EXOMUC [Concomitant]
     Dates: start: 20050513
  6. NECYRANE [Concomitant]
     Dates: start: 20050513

REACTIONS (2)
  - DERMATITIS EXFOLIATIVE [None]
  - SKIN EXFOLIATION [None]
